FAERS Safety Report 21332295 (Version 4)
Quarter: 2022Q4

REPORT INFORMATION
  Report Type: Report from Study
  Country: AU (occurrence: AU)
  Receive Date: 20220914
  Receipt Date: 20221010
  Transmission Date: 20230113
  Serious: Yes (Hospitalization)
  Sender: FDA-Public Use
  Company Number: AU-KARYOPHARM-2022KPT001032

PATIENT
  Age: 62 Year
  Sex: Male
  Weight: 64.8 kg

DRUGS (10)
  1. SELINEXOR [Suspect]
     Active Substance: SELINEXOR
     Indication: Plasma cell myeloma
     Dosage: 40 MG, WEEKLY
     Route: 048
     Dates: start: 20220318, end: 20220826
  2. LENALIDOMIDE [Suspect]
     Active Substance: LENALIDOMIDE
     Indication: Plasma cell myeloma
     Dosage: 10 MG, QD, DAYS 1-21 OF EVERY 28-DAY CYCLE
     Route: 048
     Dates: start: 20220318, end: 20220826
  3. PANTOPRAZOLE [Concomitant]
     Active Substance: PANTOPRAZOLE
     Indication: Gastrooesophageal reflux prophylaxis
     Dosage: UNK
     Dates: start: 20210628
  4. PREGABALIN [Concomitant]
     Active Substance: PREGABALIN
     Indication: Neuropathy peripheral
     Dosage: UNK
     Dates: start: 20220208
  5. VITAMIN D NOS [Concomitant]
     Active Substance: VITAMIN D NOS
     Indication: Supportive care
     Dosage: UNK
     Dates: start: 20210712
  6. ASPIRIN [Concomitant]
     Active Substance: ASPIRIN
     Indication: Thrombosis prophylaxis
     Dosage: UNK
     Dates: start: 20210624
  7. VALACYCLOVIR [Concomitant]
     Active Substance: VALACYCLOVIR HYDROCHLORIDE
     Indication: Antiviral prophylaxis
     Dosage: UNK
     Dates: start: 20210628
  8. BACTRIM [Concomitant]
     Active Substance: SULFAMETHOXAZOLE\TRIMETHOPRIM
     Indication: Antifungal prophylaxis
     Dosage: UNK
     Dates: start: 20210628
  9. THIAMINE [Concomitant]
     Active Substance: THIAMINE
     Indication: Vitamin B12 deficiency
     Dosage: UNK
     Dates: start: 20210531
  10. ZOMETA [Concomitant]
     Active Substance: ZOLEDRONIC ACID
     Indication: Plasma cell myeloma
     Dosage: UNK
     Dates: start: 20210719

REACTIONS (1)
  - Pneumonia [Recovered/Resolved with Sequelae]

NARRATIVE: CASE EVENT DATE: 20220902
